FAERS Safety Report 16220808 (Version 3)
Quarter: 2019Q4

REPORT INFORMATION
  Report Type: Spontaneous
  Country: US (occurrence: US)
  Receive Date: 20190421
  Receipt Date: 20191223
  Transmission Date: 20200122
  Serious: Yes (Hospitalization)
  Sender: FDA-Public Use
  Company Number: US-JNJFOC-20190411099

PATIENT
  Age: 55 Year
  Sex: Male

DRUGS (5)
  1. XARELTO [Suspect]
     Active Substance: RIVAROXABAN
     Indication: THROMBOSIS PROPHYLAXIS
  2. XARELTO [Suspect]
     Active Substance: RIVAROXABAN
     Indication: THROMBOSIS PROPHYLAXIS
     Route: 048
     Dates: start: 201503, end: 201601
  3. XARELTO [Suspect]
     Active Substance: RIVAROXABAN
     Indication: TRANSIENT ISCHAEMIC ATTACK
  4. XARELTO [Suspect]
     Active Substance: RIVAROXABAN
     Indication: CARDIOMEGALY
  5. ASPIRIN                            /00002701/ [Suspect]
     Active Substance: ASPIRIN
     Route: 048

REACTIONS (1)
  - Haemoptysis [Recovered/Resolved]

NARRATIVE: CASE EVENT DATE: 20160121
